FAERS Safety Report 14630966 (Version 2)
Quarter: 2018Q2

REPORT INFORMATION
  Report Type: Spontaneous
  Country: US (occurrence: US)
  Receive Date: 20180313
  Receipt Date: 20180419
  Transmission Date: 20180711
  Serious: Yes (Life-Threatening, Hospitalization, Other)
  Sender: FDA-Public Use
  Company Number: US-PFIZER INC-2018101954

PATIENT
  Age: 31 Year
  Sex: Male
  Weight: 80.29 kg

DRUGS (3)
  1. DUONEB [Concomitant]
     Active Substance: ALBUTEROL SULFATE\IPRATROPIUM BROMIDE
     Indication: ASTHMA
     Dosage: UNK, AS NEEDED, 2-4 TIMES PER DAY, HE USUALLY DOES ABOUT 2
  2. ALBUTEROL. [Concomitant]
     Active Substance: ALBUTEROL
     Indication: ASTHMA
     Dosage: 1 DF, EVERY 6 HOURS AS NEEDED
  3. GENOTROPIN MQ [Suspect]
     Active Substance: SOMATROPIN
     Indication: GROWTH HORMONE DEFICIENCY
     Dosage: 0.2 MG, 1X/DAY
     Dates: end: 20180207

REACTIONS (4)
  - Testis cancer [Not Recovered/Not Resolved]
  - Lung disorder [Unknown]
  - Abdominal pain [Unknown]
  - Abdominal mass [Unknown]

NARRATIVE: CASE EVENT DATE: 20180207
